FAERS Safety Report 5643120-6 (Version None)
Quarter: 2008Q1

REPORT INFORMATION
  Report Type: 
  Country: None (occurrence: None)
  Receive Date: 20080228
  Receipt Date: 20080220
  Transmission Date: 20080703
  Serious: Yes (Death, Life-Threatening)
  Sender: FDA-Public Use
  Company Number: US-GENENTECH-256325

PATIENT
  Sex: Male

DRUGS (1)
  1. EFALIZUMAB [Suspect]
     Indication: PSORIASIS

REACTIONS (1)
  - DEATH [None]
